FAERS Safety Report 8972279 (Version 1)
Quarter: 2012Q4

REPORT INFORMATION
  Report Type: 
  Country: GB (occurrence: GB)
  Receive Date: 20121218
  Receipt Date: 20121218
  Transmission Date: 20130627
  Serious: Yes (Hospitalization, Disabling, Other)
  Sender: FDA-Public Use
  Company Number: GB-TEVA-375880ISR

PATIENT
  Age: 59 Year
  Sex: Female
  Weight: 99 kg

DRUGS (60)
  1. DOXORUBICIN [Suspect]
     Indication: B-CELL LYMPHOMA
     Route: 042
     Dates: start: 20120312
  2. VINCRISTINE [Suspect]
     Indication: B-CELL LYMPHOMA
     Route: 040
     Dates: start: 20120312
  3. OBINUTUZUMAB [Suspect]
     Indication: B-CELL LYMPHOMA
     Route: 042
     Dates: start: 20120312
  4. CYCLOPHOSPHAMIDE [Suspect]
     Indication: B-CELL LYMPHOMA
     Route: 042
     Dates: start: 20120312
  5. PREDNISONE [Suspect]
     Indication: B-CELL LYMPHOMA
     Route: 048
     Dates: start: 20120312
  6. CO-CODAMOL [Concomitant]
     Indication: OSTEOARTHRITIS
  7. LANSOPRAZOLE [Concomitant]
     Indication: HIATUS HERNIA
  8. QUININE SULFATE [Concomitant]
     Indication: NIGHT SWEATS
  9. HORMONIN [Concomitant]
     Indication: MENOPAUSAL SYMPTOMS
  10. NAPROXEN [Concomitant]
     Indication: OSTEOARTHRITIS
  11. SERTRALINE [Concomitant]
     Indication: DEPRESSION
  12. ONDANSETRON [Concomitant]
     Indication: PROPHYLAXIS
     Dates: start: 20120312
  13. PARACETAMOL [Concomitant]
     Indication: ARTHRALGIA
     Dates: start: 20120312
  14. DOMPERIDONE [Concomitant]
     Indication: NAUSEA
     Dates: start: 20120312
  15. ALLOPURINOL [Concomitant]
     Indication: PRODUCT USED FOR UNKNOWN INDICATION
     Dates: start: 20120309
  16. NYSTATIN [Concomitant]
     Indication: ORAL CANDIDIASIS
     Dates: start: 20120609, end: 20120921
  17. METOCLOPRAMIDE [Concomitant]
     Indication: NAUSEA
     Dates: start: 20120410, end: 20120927
  18. CIPROFLOXACIN [Concomitant]
     Indication: INFECTION
     Dates: start: 20120815, end: 20120910
  19. AMOXICILLIN\CLAVULANATE POTASSIUM [Concomitant]
     Indication: URINARY TRACT INFECTION
     Dates: start: 20120827, end: 20120831
  20. FILGRASTIM [Concomitant]
     Indication: NEUTROPENIA
     Dates: start: 20120712, end: 20120712
  21. AMILORIDE [Concomitant]
     Indication: FLUID RETENTION
     Dates: start: 20120713, end: 20120817
  22. SLOW-K [Concomitant]
     Indication: BLOOD POTASSIUM DECREASED
     Dates: start: 20120808, end: 20120810
  23. TEICOPLANIN [Concomitant]
     Indication: INFECTION
     Dates: start: 20120624, end: 20120705
  24. MEROPENEM [Concomitant]
     Indication: INFECTION
     Dates: start: 20120711, end: 20120810
  25. VANCOMYCIN [Concomitant]
     Indication: INFECTION
     Dates: start: 20120705, end: 20120712
  26. VANCOMYCIN [Concomitant]
     Indication: INFECTION
     Dates: start: 20120705, end: 20120705
  27. ENOXAPARIN [Concomitant]
     Indication: INFECTION
     Dates: start: 20120629, end: 20120714
  28. LORAZEPAM [Concomitant]
     Indication: ANXIETY
     Dates: start: 20120712, end: 20120713
  29. FLUCONAZOLE [Concomitant]
     Indication: INFECTION
     Dates: start: 20120713, end: 20120718
  30. FERROUS SULPHATE [Concomitant]
     Indication: ANAEMIA
     Dates: start: 20120626, end: 20120711
  31. FLUCLOXACILLIN [Concomitant]
     Indication: PRODUCT USED FOR UNKNOWN INDICATION
     Dates: start: 20120609, end: 20120825
  32. AMBISOME [Concomitant]
     Indication: PRODUCT USED FOR UNKNOWN INDICATION
     Dates: start: 20120713, end: 20120713
  33. ACICLOVIR [Concomitant]
     Indication: PRODUCT USED FOR UNKNOWN INDICATION
     Dates: start: 20120711, end: 20120727
  34. PREDNISOLONE [Concomitant]
     Indication: PRODUCT USED FOR UNKNOWN INDICATION
     Dates: start: 20120312
  35. CYCLIZINE [Concomitant]
     Indication: NAUSEA
     Dates: start: 20120604
  36. CHLORPHENAMINE [Concomitant]
     Indication: ERYTHEMA
     Dates: start: 20120714
  37. HYDROCORTISONE [Concomitant]
     Indication: PRODUCT USED FOR UNKNOWN INDICATION
     Dates: start: 20120708
  38. CHLORHEXIDINE [Concomitant]
     Indication: MUCOSAL INFLAMMATION
     Dates: start: 20120711, end: 20120727
  39. SANDO-K [Concomitant]
     Indication: BLOOD POTASSIUM DECREASED
     Dates: start: 20120714, end: 20120808
  40. CALCIUM GLUCONATE [Concomitant]
     Indication: BLOOD CALCIUM DECREASED
     Dates: start: 20120722, end: 20120722
  41. FUROSEMIDE [Concomitant]
     Indication: OEDEMA
     Dates: start: 20120724, end: 20120724
  42. LEVOMEPROMAZINE [Concomitant]
     Indication: ANXIETY
     Dates: start: 20120718, end: 20120718
  43. BLOOD [Concomitant]
     Indication: ANAEMIA
     Dates: start: 20120624, end: 20120624
  44. HUMAN ACTRAPID [Concomitant]
     Indication: BLOOD GLUCOSE INCREASED
     Dates: start: 20120727, end: 20120727
  45. HALOPERIDOL [Concomitant]
     Indication: NAUSEA
     Dates: start: 20120904, end: 20120926
  46. METRONIDAZOLE [Concomitant]
     Indication: INFECTION
     Dates: start: 20120911, end: 20120920
  47. MAGNESIUM [Concomitant]
     Indication: BLOOD MAGNESIUM DECREASED
     Dates: start: 20120624, end: 20120624
  48. DEXAMETHASONE [Concomitant]
     Indication: PRODUCT USED FOR UNKNOWN INDICATION
     Dates: start: 20120702, end: 20120702
  49. FOLIC ACID [Concomitant]
     Indication: PRODUCT USED FOR UNKNOWN INDICATION
     Dates: start: 20120624, end: 20120704
  50. GRANULOCYTE MACROPHAGE COLONY STIMULATING FACTOR NOS [Concomitant]
     Indication: NEUTROPENIA
     Dates: start: 20120712, end: 20120712
  51. PLATELETS [Concomitant]
     Indication: PLATELET COUNT DECREASED
     Dates: start: 20120804, end: 20120804
  52. MIDAZOLAM [Concomitant]
     Indication: ANXIETY
     Dates: start: 20120731, end: 20120731
  53. METARAMINOL [Concomitant]
     Indication: HYPOTENSION
     Dates: start: 20120731, end: 20120731
  54. SPIRONOLACTONE [Concomitant]
     Indication: OEDEMA
     Dates: start: 20120730, end: 20120803
  55. GLUCOSE [Concomitant]
     Indication: BLOOD GLUCOSE DECREASED
     Dates: start: 20120801, end: 20120801
  56. CORSODYL [Concomitant]
     Indication: PRODUCT USED FOR UNKNOWN INDICATION
     Dates: start: 20120625, end: 20120627
  57. CANESTEN [Concomitant]
     Indication: CANDIDIASIS
     Dates: start: 20120708, end: 20120726
  58. PHOSPHATE-SANDOZ [Concomitant]
     Indication: PRODUCT USED FOR UNKNOWN INDICATION
  59. ORAMORPH [Concomitant]
     Indication: PRODUCT USED FOR UNKNOWN INDICATION
  60. GELOFUSINE [Concomitant]
     Indication: PRODUCT USED FOR UNKNOWN INDICATION

REACTIONS (4)
  - Pulmonary embolism [Recovered/Resolved]
  - Pulmonary cavitation [Recovered/Resolved]
  - Lung infection [Recovered/Resolved]
  - Respiratory failure [Recovered/Resolved]
